FAERS Safety Report 22601549 (Version 5)
Quarter: 2024Q1

REPORT INFORMATION
  Report Type: Spontaneous
  Country: US (occurrence: US)
  Receive Date: 20230614
  Receipt Date: 20240119
  Transmission Date: 20240409
  Serious: Yes (Disabling)
  Sender: FDA-Public Use
  Company Number: US-PFIZER INC-202300219823

PATIENT
  Age: 58 Year
  Sex: Female
  Weight: 74.376 kg

DRUGS (1)
  1. NURTEC ODT [Suspect]
     Active Substance: RIMEGEPANT SULFATE
     Dosage: 75 MG (ONLY USED 3 TIMES)
     Dates: start: 202306

REACTIONS (4)
  - Migraine [Recovered/Resolved with Sequelae]
  - Poor quality product administered [Unknown]
  - Product physical issue [Unknown]
  - Malaise [Unknown]
